FAERS Safety Report 5928735-X (Version None)
Quarter: 2008Q4

REPORT INFORMATION
  Report Type: 
  Country: None (occurrence: None)
  Receive Date: 20081023
  Receipt Date: 20081014
  Transmission Date: 20090506
  Serious: Yes (Hospitalization)
  Sender: FDA-Public Use
  Company Number: PL-MERCK-0810POL00010

PATIENT
  Age: 80 Year
  Sex: Male

DRUGS (2)
  1. TRUSOPT [Suspect]
     Indication: OPEN ANGLE GLAUCOMA
     Route: 047
  2. TIMOLOL MALEATE [Suspect]
     Indication: OPEN ANGLE GLAUCOMA
     Route: 065

REACTIONS (5)
  - CATARACT [None]
  - CHOROIDAL DETACHMENT [None]
  - EYE DISORDER [None]
  - INTRAOCULAR PRESSURE DECREASED [None]
  - VISUAL IMPAIRMENT [None]
